FAERS Safety Report 5863523-4 (Version None)
Quarter: 2008Q3

REPORT INFORMATION
  Report Type: 
  Country: None (occurrence: None)
  Receive Date: 20080828
  Receipt Date: 20080819
  Transmission Date: 20090109
  Serious: Yes (Hospitalization, Other)
  Sender: FDA-Public Use
  Company Number: US-ELI_LILLY_AND_COMPANY-US200808003779

PATIENT
  Age: 72 Year
  Sex: Female

DRUGS (2)
  1. EVISTA [Suspect]
     Dosage: 60 MG, UNK
     Dates: start: 20080101
  2. ASPIRIN [Concomitant]
     Dosage: UNK, DAILY (1/D)

REACTIONS (2)
  - DEEP VEIN THROMBOSIS [None]
  - GAIT DISTURBANCE [None]
